FAERS Safety Report 7646907-3 (Version None)
Quarter: 2011Q3

REPORT INFORMATION
  Report Type: 
  Country: None (occurrence: None)
  Receive Date: 20110801
  Receipt Date: 20110722
  Transmission Date: 20111222
  Serious: Yes (Other)
  Sender: FDA-Public Use
  Company Number: US-PERRIGO-11US006062

PATIENT
  Sex: Male
  Weight: 70.748 kg

DRUGS (3)
  1. DIPHENHYDRAMINE HCL [Suspect]
     Indication: SLEEP DISORDER
     Dosage: 50 MG, AT BEDTIME
     Route: 048
     Dates: start: 20110718, end: 20110719
  2. LAMOTRIGINE [Concomitant]
     Indication: CONVULSION
     Dosage: ONE TABLET, TWICE A DAY
     Route: 048
  3. DIPHENHYDRAMINE HCL [Suspect]
     Dosage: TWO CAPLETS, ONCE A DAY
     Route: 048
     Dates: start: 20110718, end: 20110719

REACTIONS (6)
  - CONVULSION [None]
  - DELIRIUM [None]
  - DEHYDRATION [None]
  - DIZZINESS [None]
  - FALL [None]
  - THIRST [None]
